FAERS Safety Report 4645779-9 (Version None)
Quarter: 2005Q2

REPORT INFORMATION
  Report Type: 
  Country: None (occurrence: None)
  Receive Date: 20050425
  Receipt Date: 20050414
  Transmission Date: 20051028
  Serious: Yes (Other)
  Sender: FDA-Public Use
  Company Number: 200510127BYL

PATIENT
  Age: 84 Year
  Sex: Female

DRUGS (9)
  1. ASPIRIN [Suspect]
     Indication: CEREBRAL INFARCTION
     Dosage: 100 MG, QD, ORAL
     Route: 048
     Dates: start: 20050227, end: 20050302
  2. KETAS [Concomitant]
  3. OMEPRAL [Concomitant]
  4. HALCION [Concomitant]
  5. MILTAX [Concomitant]
  6. RADICUT [Concomitant]
  7. XANBON [Concomitant]
  8. PL GRAN. [Concomitant]
  9. NEO-MINOPHAGEN C [Concomitant]

REACTIONS (1)
  - WHITE BLOOD CELL COUNT DECREASED [None]
